FAERS Safety Report 6059043-7 (Version None)
Quarter: 2009Q1

REPORT INFORMATION
  Report Type: 
  Country: None (occurrence: None)
  Receive Date: 20090130
  Receipt Date: 20090119
  Transmission Date: 20090719
  Serious: Yes (Hospitalization)
  Sender: FDA-Public Use
  Company Number: B0554780A

PATIENT
  Age: 48 Year
  Sex: Female

DRUGS (8)
  1. DEROXAT [Suspect]
     Indication: DRUG USE FOR UNKNOWN INDICATION
     Dosage: 20MG PER DAY
     Route: 048
     Dates: start: 20081109, end: 20081217
  2. ERYTHROCINE [Suspect]
     Dosage: 250MG FOUR TIMES PER DAY
     Route: 042
     Dates: start: 20081202, end: 20081212
  3. ACTRAPID [Concomitant]
     Route: 065
  4. CALCIPARINE [Concomitant]
     Route: 065
  5. NEXIUM [Concomitant]
     Route: 065
  6. IMODIUM [Concomitant]
     Route: 065
  7. LEXOMIL [Concomitant]
     Route: 065
  8. ANTIBIOTIC [Concomitant]
     Route: 065
     Dates: end: 20081202

REACTIONS (6)
  - BLOOD BILIRUBIN INCREASED [None]
  - CHOLESTASIS [None]
  - DRUG INTERACTION [None]
  - HEPATOCELLULAR INJURY [None]
  - TRANSAMINASES INCREASED [None]
  - WEIGHT DECREASED [None]
